FAERS Safety Report 9877718 (Version 1)
Quarter: 2014Q1

REPORT INFORMATION
  Report Type: Spontaneous
  Country: DE (occurrence: DE)
  Receive Date: 20140206
  Receipt Date: 20140206
  Transmission Date: 20141002
  Serious: Yes (Life-Threatening, Hospitalization, Other)
  Sender: FDA-Public Use
  Company Number: DE-SA-2014SA012576

PATIENT
  Age: 54 Year
  Sex: Male

DRUGS (7)
  1. TRENTAL [Suspect]
     Indication: SUICIDE ATTEMPT
     Route: 048
     Dates: start: 20101025, end: 20101025
  2. ALPRAZOLAM [Suspect]
     Indication: SUICIDE ATTEMPT
     Route: 048
     Dates: start: 20101025, end: 20101025
  3. BUFLO-PUREN [Suspect]
     Indication: SUICIDE ATTEMPT
     Route: 048
     Dates: start: 20101025, end: 20101025
  4. CIBACEN [Suspect]
     Indication: SUICIDE ATTEMPT
     Route: 048
     Dates: start: 20101025, end: 20101025
  5. DOXYLAMINE SUCCINATE [Suspect]
     Indication: SUICIDE ATTEMPT
     Route: 048
     Dates: start: 20101025, end: 20101025
  6. SERTRALINE [Suspect]
     Indication: SUICIDE ATTEMPT
     Route: 048
     Dates: start: 20101025, end: 20101025
  7. ZOLDEM [Suspect]
     Indication: SUICIDE ATTEMPT
     Dosage: 40X10 MG
     Route: 048
     Dates: start: 20101025, end: 20101025

REACTIONS (4)
  - Suicide attempt [Unknown]
  - Intentional overdose [Unknown]
  - Respiratory depression [Unknown]
  - Coma [Unknown]
